FAERS Safety Report 5133087-1 (Version None)
Quarter: 2006Q4

REPORT INFORMATION
  Report Type: 
  Country: None (occurrence: None)
  Receive Date: 20061017
  Receipt Date: 20061002
  Transmission Date: 20070319
  Serious: Yes (Hospitalization)
  Sender: FDA-Public Use
  Company Number: 2006-148600-NL

PATIENT
  Age: 35 Year
  Sex: Male

DRUGS (6)
  1. CHORIONIC GONADOTROPIN [Suspect]
     Dosage: 3 DF, INTRAMUSCULAR
     Route: 030
  2. OXYMETHOLONE [Suspect]
     Dosage: 1 DF WEEKLY, INTRAMUSCULAR
     Route: 030
  3. TESTOSTERONE ENANTHATE [Suspect]
     Dosage: 1 DF WEEKLY/2  DF WEEKLY, INTRAMUSCULAR
     Route: 030
  4. AMOXICILLIN [Concomitant]
  5. ACETAMINOPHEN W/ CODEINE [Concomitant]
  6. IBUPROFEN [Concomitant]

REACTIONS (6)
  - CHROMATURIA [None]
  - EYE DISORDER [None]
  - HAEMOCHROMATOSIS [None]
  - HEPATITIS [None]
  - PAIN [None]
  - SERUM FERRITIN INCREASED [None]
